FAERS Safety Report 24667556 (Version 1)
Quarter: 2024Q4

REPORT INFORMATION
  Report Type: Spontaneous
  Country: AU (occurrence: AU)
  Receive Date: 20241126
  Receipt Date: 20241126
  Transmission Date: 20250114
  Serious: Yes (Death, Other)
  Sender: CIPLA
  Company Number: AU-CIPLA LTD.-2024AU13175

PATIENT

DRUGS (2)
  1. AZACITIDINE [Suspect]
     Active Substance: AZACITIDINE
     Indication: Myelodysplastic syndrome
     Dosage: UNK
     Route: 065
  2. RITUXIMAB [Suspect]
     Active Substance: RITUXIMAB
     Indication: Myelodysplastic syndrome
     Dosage: UNK
     Route: 065

REACTIONS (1)
  - Neoplasm malignant [Fatal]
